FAERS Safety Report 8730386 (Version 2)
Quarter: 2012Q4

REPORT INFORMATION
  Report Type: Report from Study
  Country: NL (occurrence: NL)
  Receive Date: 20120817
  Receipt Date: 20120928
  Transmission Date: 20130627
  Serious: Yes (Hospitalization)
  Sender: FDA-Public Use
  Company Number: NL-ABBOTT-12P-114-0967428-00

PATIENT
  Age: 59 Year
  Sex: Female
  Weight: 85 kg

DRUGS (5)
  1. HUMIRA [Suspect]
     Indication: RHEUMATOID ARTHRITIS
     Route: 058
     Dates: start: 20101110, end: 20120105
  2. HUMIRA [Suspect]
     Route: 058
     Dates: start: 201201, end: 20120401
  3. METHOTREXATE [Concomitant]
     Indication: RHEUMATOID ARTHRITIS
     Route: 048
     Dates: start: 20090923
  4. THYRAX [Concomitant]
     Indication: PRODUCT USED FOR UNKNOWN INDICATION
     Route: 048
  5. PANTOZOL [Concomitant]
     Indication: PRODUCT USED FOR UNKNOWN INDICATION
     Route: 048

REACTIONS (4)
  - Bladder transitional cell carcinoma [Recovered/Resolved]
  - Mucosal inflammation [Recovered/Resolved]
  - Transurethral bladder resection [Recovered/Resolved]
  - Transurethral bladder resection [Recovered/Resolved]
